FAERS Safety Report 4870276-5 (Version None)
Quarter: 2005Q4

REPORT INFORMATION
  Report Type: 
  Country: None (occurrence: None)
  Receive Date: 20051228
  Receipt Date: 20051208
  Transmission Date: 20060501
  Serious: Yes (Hospitalization)
  Sender: FDA-Public Use
  Company Number: THYR-10195

PATIENT
  Age: 40 Year
  Sex: Female

DRUGS (4)
  1. THYROGEN [Suspect]
     Indication: DIAGNOSTIC PROCEDURE
     Dosage: 0.9 MG ONCE IM
     Route: 030
     Dates: start: 20040617, end: 20040618
  2. ZANIDIP [Concomitant]
  3. LEVOTHYROXINE SODIUM [Concomitant]
  4. SEGLOR [Concomitant]

REACTIONS (11)
  - BACK PAIN [None]
  - BRONCHOSPASM [None]
  - CHEST PAIN [None]
  - CHRONIC OBSTRUCTIVE PULMONARY DISEASE [None]
  - HIATUS HERNIA [None]
  - HYPERVENTILATION [None]
  - HYPOCAPNIA [None]
  - HYPOXIA [None]
  - RALES [None]
  - SINUSITIS [None]
  - TACHYCARDIA [None]
